FAERS Safety Report 8819795 (Version 1)
Quarter: 2012Q4

REPORT INFORMATION
  Report Type: 
  Country: US (occurrence: US)
  Receive Date: 20121001
  Receipt Date: 20121001
  Transmission Date: 20130627
  Serious: Yes (Hospitalization, Other)
  Sender: FDA-Public Use
  Company Number: US-ROCHE-1125826

PATIENT
  Sex: Female

DRUGS (13)
  1. HERCEPTIN [Suspect]
     Indication: LUNG NEOPLASM MALIGNANT
     Dosage: Loading dose
     Route: 065
     Dates: start: 20010222
  2. HERCEPTIN [Suspect]
     Indication: BONE CANCER METASTATIC
     Dosage: Maintenance dose
     Route: 065
     Dates: start: 20010222
  3. TAXOTERE [Concomitant]
     Route: 065
  4. PREMARIN [Concomitant]
     Route: 065
  5. PROVERA [Concomitant]
     Route: 065
  6. ATENOLOL [Concomitant]
     Route: 065
  7. AVALIDE [Concomitant]
     Route: 065
  8. ALLEGRA [Concomitant]
     Route: 065
  9. ATIVAN [Concomitant]
     Indication: NAUSEA
     Route: 065
  10. PRILOSEC [Concomitant]
  11. IRESSA [Concomitant]
     Route: 065
  12. DECADRON [Concomitant]
     Route: 065
  13. ATROPIN [Concomitant]
     Route: 042

REACTIONS (15)
  - Pneumonia [Recovering/Resolving]
  - Mediastinal disorder [Unknown]
  - Vocal cord paralysis [Recovered/Resolved]
  - Tinnitus [Unknown]
  - Pleural effusion [Unknown]
  - Anaemia [Unknown]
  - Dyspnoea [Unknown]
  - Fatigue [Unknown]
  - Hyponatraemia [Unknown]
  - Pain [Unknown]
  - Insomnia [Unknown]
  - Diarrhoea [Unknown]
  - Nausea [Unknown]
  - Alopecia [Unknown]
  - Decreased appetite [Unknown]
